FAERS Safety Report 8288447-7 (Version None)
Quarter: 2012Q2

REPORT INFORMATION
  Report Type: 
  Country: None (occurrence: None)
  Receive Date: 20120416
  Receipt Date: 20120405
  Transmission Date: 20120825
  Serious: Yes (Hospitalization)
  Sender: FDA-Public Use
  Company Number: FR-ROCHE-1057607

PATIENT
  Sex: Male

DRUGS (1)
  1. MYCOPHENOLATE MOFETIL (CELLCEPT) [Suspect]
     Indication: ANTISYNTHETASE SYNDROME
     Route: 048
     Dates: end: 20120206

REACTIONS (5)
  - MAJOR DEPRESSION [None]
  - ABULIA [None]
  - SUICIDAL IDEATION [None]
  - INSOMNIA [None]
  - ANXIETY [None]
